FAERS Safety Report 6146660-9 (Version None)
Quarter: 2009Q2

REPORT INFORMATION
  Report Type: 
  Country: None (occurrence: None)
  Receive Date: 20090407
  Receipt Date: 20090330
  Transmission Date: 20091009
  Serious: Yes (Hospitalization, Other)
  Sender: FDA-Public Use
  Company Number: US-ELI_LILLY_AND_COMPANY-US200903007369

PATIENT
  Age: 69 Year
  Sex: Male

DRUGS (2)
  1. HUMALOG [Suspect]
     Indication: DIABETES MELLITUS
     Dosage: UNK, UNK
     Dates: start: 19970101
  2. SITAGLIPTIN [Concomitant]

REACTIONS (6)
  - BIOPSY PROSTATE [None]
  - BLOOD GLUCOSE INCREASED [None]
  - CHILLS [None]
  - PROSTATE CANCER [None]
  - PYREXIA [None]
  - SEPSIS [None]
